FAERS Safety Report 6602300-3 (Version None)
Quarter: 2010Q1

REPORT INFORMATION
  Report Type: 
  Country: None (occurrence: None)
  Receive Date: 20100225
  Receipt Date: 20100217
  Transmission Date: 20100710
  Serious: Yes (Hospitalization)
  Sender: FDA-Public Use
  Company Number: TW-WATSON-2010-01924

PATIENT
  Age: 33 Year
  Sex: Male

DRUGS (1)
  1. SULFASALAZINE [Suspect]
     Indication: ANKYLOSING SPONDYLITIS
     Dosage: UNK
     Dates: start: 20060301

REACTIONS (1)
  - ARTHRITIS BACTERIAL [None]
